FAERS Safety Report 8465229 (Version 3)
Quarter: 2012Q4

REPORT INFORMATION
  Report Type: 
  Country: FR (occurrence: FR)
  Receive Date: 20120319
  Receipt Date: 20120905
  Transmission Date: 20130627
  Serious: Yes (Other)
  Sender: FDA-Public Use
  Company Number: FR-PFIZER INC-2012066679

PATIENT
  Age: 58 Year
  Sex: Male
  Weight: 78 kg

DRUGS (2)
  1. SUTENT [Suspect]
     Indication: RENAL CANCER
     Dosage: 50 mg, 1x/day
     Dates: start: 201010, end: 201205
  2. ZOMETA [Suspect]
     Indication: RENAL CANCER
     Dosage: 1 injection, every 4 weeks
     Dates: start: 201010, end: 201203

REACTIONS (1)
  - Osteonecrosis of jaw [Not Recovered/Not Resolved]
